FAERS Safety Report 5502017-2 (Version None)
Quarter: 2007Q4

REPORT INFORMATION
  Report Type: 
  Country: None (occurrence: None)
  Receive Date: 20071030
  Receipt Date: 20071026
  Transmission Date: 20080405
  Serious: Yes (Other)
  Sender: FDA-Public Use
  Company Number: B0493066A

PATIENT
  Age: 80 Year
  Sex: Female

DRUGS (2)
  1. ZELITREX [Suspect]
     Indication: HERPES ZOSTER
     Dosage: 3TAB PER DAY
     Route: 048
     Dates: start: 20071020, end: 20071026
  2. NON STEROIDAL ANTIINFLAMMATORY [Concomitant]

REACTIONS (4)
  - DISORIENTATION [None]
  - DIZZINESS [None]
  - DRUG ADMINISTRATION ERROR [None]
  - HALLUCINATION [None]
